FAERS Safety Report 9264892 (Version 1)
Quarter: 2013Q2

REPORT INFORMATION
  Report Type: Report from Study
  Country: US (occurrence: US)
  Receive Date: 20130501
  Receipt Date: 20130501
  Transmission Date: 20140414
  Serious: Yes (Other)
  Sender: FDA-Public Use
  Company Number: PHEH2013US009506

PATIENT
  Age: 72 Year
  Sex: Female

DRUGS (8)
  1. GLEEVEC [Suspect]
     Indication: SOFT TISSUE CANCER
     Dosage: 400 MG, DAILY
     Route: 048
     Dates: start: 20120227
  2. PRADAXA [Concomitant]
  3. ASPIRIN [Concomitant]
  4. NEXIUM 1-2-3 [Concomitant]
  5. FOLIC ACID [Concomitant]
  6. COREG [Concomitant]
  7. ZOCOR [Concomitant]
  8. ZESTRIL [Concomitant]

REACTIONS (2)
  - Haematochezia [Unknown]
  - Anaemia [Unknown]
